FAERS Safety Report 4364068-3 (Version None)
Quarter: 2004Q2

REPORT INFORMATION
  Report Type: 
  Country: None (occurrence: None)
  Receive Date: 20040520
  Receipt Date: 20040520
  Transmission Date: 20050107
  Serious: Yes (Other)
  Sender: FDA-Public Use
  Company Number: None

PATIENT
  Sex: Female
  Weight: 85.8 kg

DRUGS (14)
  1. GEMCITABINE, ELI LILLY AND COMPANY [Suspect]
     Indication: PANCREATIC CARCINOMA
     Dosage: 1,000 MG/M2 ADMINISTERED IV WEEKLY
     Route: 042
     Dates: start: 20040421
  2. THALIDOMIDE [Concomitant]
  3. CELECOXIB [Concomitant]
  4. COMPAZINE [Concomitant]
  5. GEMCITABINE [Concomitant]
  6. METAPROLOL [Concomitant]
  7. TRIAMTERENE [Concomitant]
  8. HYDROCHLOROTHIAZIDE [Concomitant]
  9. NORVASC [Concomitant]
  10. MULTIVITAMIN [Concomitant]
  11. VITAMIN B-12 [Concomitant]
  12. VITAMIN E [Concomitant]
  13. ASPIRIN [Concomitant]
  14. CELEXA [Concomitant]

REACTIONS (1)
  - ASPARTATE AMINOTRANSFERASE INCREASED [None]
